FAERS Safety Report 8390327-3 (Version None)
Quarter: 2012Q2

REPORT INFORMATION
  Report Type: 
  Country: None (occurrence: None)
  Receive Date: 20120529
  Receipt Date: 20120522
  Transmission Date: 20120825
  Serious: Yes (Death)
  Sender: FDA-Public Use
  Company Number: IN-PFIZER INC-2012124402

PATIENT
  Sex: Male

DRUGS (1)
  1. SUTENT [Suspect]
     Indication: METASTATIC RENAL CELL CARCINOMA
     Dosage: 50 MG, 1X/DAY
     Route: 048

REACTIONS (7)
  - PAIN IN EXTREMITY [None]
  - BLOOD TRIGLYCERIDES INCREASED [None]
  - DEATH [None]
  - FISTULA [None]
  - YELLOW SKIN [None]
  - SKIN IRRITATION [None]
  - BLOOD CHOLESTEROL INCREASED [None]
